FAERS Safety Report 14155077 (Version 1)
Quarter: 2017Q4

REPORT INFORMATION
  Report Type: Spontaneous
  Country: US (occurrence: US)
  Receive Date: 20171103
  Receipt Date: 20171103
  Transmission Date: 20180321
  Serious: No
  Sender: FDA-Public Use
  Company Number: US-CIPLA LTD.-2016US23427

PATIENT

DRUGS (6)
  1. WELLBUTRIN [Concomitant]
     Active Substance: BUPROPION HYDROCHLORIDE
     Dosage: UNK
     Route: 065
  2. ESCITALOPRAM [Suspect]
     Active Substance: ESCITALOPRAM OXALATE
     Dosage: TAPERING DOWN 5 MG EVERY MONTH
     Route: 065
  3. ESCITALOPRAM [Suspect]
     Active Substance: ESCITALOPRAM OXALATE
     Dosage: TAPERING FOR 2 MONTHS
     Route: 065
  4. ESCITALOPRAM [Suspect]
     Active Substance: ESCITALOPRAM OXALATE
     Dosage: 10 MG
     Route: 065
  5. ESCITALOPRAM [Suspect]
     Active Substance: ESCITALOPRAM OXALATE
     Dosage: 5 MG
     Route: 065
  6. ESCITALOPRAM [Suspect]
     Active Substance: ESCITALOPRAM OXALATE
     Indication: DEPRESSION
     Dosage: 20 MG, UNK
     Route: 065
     Dates: start: 20121216

REACTIONS (1)
  - Anxiety [Not Recovered/Not Resolved]

NARRATIVE: CASE EVENT DATE: 201601
